FAERS Safety Report 10706695 (Version 4)
Quarter: 2016Q2

REPORT INFORMATION
  Report Type: Spontaneous
  Country: US (occurrence: US)
  Receive Date: 20150113
  Receipt Date: 20160411
  Transmission Date: 20160815
  Serious: Yes (Hospitalization, Other)
  Sender: FDA-Public Use
  Company Number: US-PFIZER INC-2015011626

PATIENT
  Age: 51 Year
  Sex: Female

DRUGS (18)
  1. KLONOPIN [Concomitant]
     Active Substance: CLONAZEPAM
     Dosage: 1 DF, 2X/DAY(MAY TAKE AN ADDITIONAL 0.5 MG IF NEEDED)
     Route: 048
  2. PHENERGAN W/ CODEINE [Concomitant]
     Active Substance: CODEINE PHOSPHATE\PROMETHAZINE HYDROCHLORIDE
     Indication: COUGH
     Dosage: PROMETHAZINE-CODEINE 6.25-10 MG/5 ML, 5-10 MLS EVERY 4 TO 6 HRS AS NEEDED
     Route: 048
     Dates: start: 20160229
  3. MOBIC [Concomitant]
     Active Substance: MELOXICAM
     Indication: PAIN
     Dosage: 15 MG, 1X/DAY (EVERY MORNING WITH FOOD)
     Dates: start: 20160301
  4. BUSPAR [Concomitant]
     Active Substance: BUSPIRONE HYDROCHLORIDE
     Dosage: 15 MG, 2X/DAY
     Route: 048
  5. TOPAMAX [Concomitant]
     Active Substance: TOPIRAMATE
     Dosage: 50 MG, 1X/DAY (EVERY EVENING)
     Route: 048
  6. GEODON [Concomitant]
     Active Substance: ZIPRASIDONE HYDROCHLORIDE\ZIPRASIDONE MESYLATE
     Dosage: 60 MG, 2X/DAY (WITH MEALS)
     Route: 048
  7. PROVENTIL HFA [Concomitant]
     Active Substance: ALBUTEROL SULFATE
     Indication: WHEEZING
     Dosage: 108 (90 BASE) MCG/ACT INHALER, INHALE 2 PUFFS INTO THE LUNGS EVERY 4 HOURS AS NEEDED
     Dates: start: 20150901
  8. LYRICA [Suspect]
     Active Substance: PREGABALIN
     Indication: FIBROMYALGIA
     Dosage: 150 MG, 3X/DAY
     Dates: start: 2013
  9. LYRICA [Suspect]
     Active Substance: PREGABALIN
     Dosage: 150 MG, 3X/DAY
     Route: 048
     Dates: start: 20150902
  10. QVAR [Concomitant]
     Active Substance: BECLOMETHASONE DIPROPIONATE
     Dosage: 1 DF (INHALE 1 PUFF INTO THE LUNGS), 2X/DAY
     Dates: start: 20150901
  11. PROTONIX [Concomitant]
     Active Substance: PANTOPRAZOLE SODIUM
     Dosage: 40 MG, DAILY AS NEEDED
     Route: 048
     Dates: start: 20150901
  12. MOBIC [Concomitant]
     Active Substance: MELOXICAM
     Indication: INFLAMMATION
  13. SPIRIVA [Concomitant]
     Active Substance: TIOTROPIUM BROMIDE MONOHYDRATE
     Dosage: 18 UG, DAILY (1 CAPSULE INTO INHALER AND INHALE DAILY)
     Dates: start: 20150901
  14. GEODON [Concomitant]
     Active Substance: ZIPRASIDONE HYDROCHLORIDE\ZIPRASIDONE MESYLATE
     Dosage: 20 MG, 1X/DAY (NIGHTLY)
     Route: 048
  15. ZOFRAN [Concomitant]
     Active Substance: ONDANSETRON HYDROCHLORIDE
     Indication: NAUSEA
     Dosage: 4 MG, 3X/DAY (EVERY 8 HOURS AS NEEDED)
     Route: 048
     Dates: start: 20140805
  16. VENTOLIN HFA [Concomitant]
     Active Substance: ALBUTEROL SULFATE
     Indication: WHEEZING
     Dosage: 108 (90 BASE) MCG/ACT INHALER INHALE 2 PUFFS INTO THE LUNGS EVERY 4 HOURS AS NEEDED
     Dates: start: 20150901
  17. PROVENTIL [Concomitant]
     Active Substance: ALBUTEROL
     Indication: WHEEZING
     Dosage: 0.083% NEBULIZER SOLUTION, 3 ML BY NEBULIZATION TWO TIMES DAILY AS NEEDED
     Dates: start: 20150901
  18. TOPAMAX [Concomitant]
     Active Substance: TOPIRAMATE
     Dosage: 25 MG, DAILY
     Route: 048

REACTIONS (3)
  - Myocardial infarction [Recovered/Resolved]
  - Drug ineffective [Unknown]
  - Coronary artery thrombosis [Recovered/Resolved]

NARRATIVE: CASE EVENT DATE: 2014
